FAERS Safety Report 17220395 (Version 1)
Quarter: 2019Q4

REPORT INFORMATION
  Report Type: Spontaneous
  Country: JP (occurrence: JP)
  Receive Date: 20191231
  Receipt Date: 20191231
  Transmission Date: 20200122
  Serious: Yes (Death, Other)
  Sender: FDA-Public Use
  Company Number: NVSC2019JP082561

PATIENT
  Age: 52 Year
  Sex: Female
  Weight: 59 kg

DRUGS (12)
  1. OXALIPLATIN. [Suspect]
     Active Substance: OXALIPLATIN
     Indication: INTESTINAL OBSTRUCTION
  2. CISPLATIN. [Suspect]
     Active Substance: CISPLATIN
     Indication: INTESTINAL OBSTRUCTION
  3. OXALIPLATIN. [Suspect]
     Active Substance: OXALIPLATIN
     Indication: APPENDIX CANCER
     Dosage: 130 MG
     Route: 065
  4. PANITUMUMAB [Suspect]
     Active Substance: PANITUMUMAB
     Indication: INTESTINAL OBSTRUCTION
  5. CALCIUM LEVOFOLINATE OR INTRAVENOUS INFUSION [Suspect]
     Active Substance: LEVOLEUCOVORIN CALCIUM
     Indication: INTESTINAL OBSTRUCTION
  6. CALCIUM LEVOFOLINATE OR INTRAVENOUS INFUSION [Suspect]
     Active Substance: LEVOLEUCOVORIN CALCIUM
     Indication: APPENDIX CANCER
     Dosage: 300 MG
     Route: 065
  7. PACLITAXEL. [Suspect]
     Active Substance: PACLITAXEL
     Indication: APPENDIX CANCER
     Dosage: 190 MG
     Route: 065
  8. PANITUMUMAB [Suspect]
     Active Substance: PANITUMUMAB
     Indication: APPENDIX CANCER
     Dosage: 330 MG
     Route: 065
  9. PACLITAXEL. [Suspect]
     Active Substance: PACLITAXEL
     Indication: INTESTINAL OBSTRUCTION
  10. 5 FLUOROURACIL [Suspect]
     Active Substance: FLUOROURACIL
     Indication: APPENDIX CANCER
     Dosage: 600 MG (BOLUS)
     Route: 065
  11. 5 FLUOROURACIL [Suspect]
     Active Substance: FLUOROURACIL
     Indication: INTESTINAL OBSTRUCTION
     Dosage: 3750 MG, Q2W (CONTINOUS INFUSION)
     Route: 041
  12. CISPLATIN. [Suspect]
     Active Substance: CISPLATIN
     Indication: APPENDIX CANCER
     Dosage: 590 MG
     Route: 065

REACTIONS (11)
  - Jaundice cholestatic [Unknown]
  - Pancytopenia [Unknown]
  - Rash [Unknown]
  - Appendix cancer [Fatal]
  - Alopecia [Unknown]
  - Anaemia [Unknown]
  - Malaise [Unknown]
  - Product use in unapproved indication [Unknown]
  - Malignant neoplasm progression [Fatal]
  - Febrile neutropenia [Unknown]
  - Metastases to peritoneum [Unknown]
